FAERS Safety Report 22014484 (Version 1)
Quarter: 2023Q1

REPORT INFORMATION
  Report Type: Other
  Country: ES (occurrence: None)
  Receive Date: 20230221
  Receipt Date: 20230221
  Transmission Date: 20230418
  Serious: Yes (Hospitalization)
  Sender: FDA-Public Use
  Company Number: ES-ROCHE-3290168

PATIENT
  Age: 39 Year
  Sex: Male

DRUGS (1)
  1. OCRELIZUMAB [Suspect]
     Active Substance: OCRELIZUMAB
     Indication: Primary progressive multiple sclerosis
     Dosage: SECOND CYCLE GIVEN IN APRIL 2021
     Route: 065
     Dates: start: 201811

REACTIONS (2)
  - Febrile neutropenia [Recovered/Resolved]
  - Enteritis [Recovered/Resolved]
